FAERS Safety Report 23572741 (Version 2)
Quarter: 2024Q1

REPORT INFORMATION
  Report Type: Spontaneous
  Country: DE (occurrence: DE)
  Receive Date: 20240227
  Receipt Date: 20240313
  Transmission Date: 20240410
  Serious: Yes (Hospitalization, Other)
  Sender: FDA-Public Use
  Company Number: DE-DEXPHARM-20240236

PATIENT
  Age: 95 Year
  Sex: Female

DRUGS (8)
  1. TORSEMIDE [Interacting]
     Active Substance: TORSEMIDE
     Indication: Product used for unknown indication
     Dosage: 20 MILLIGRAM, QD (TORASEMID 10 MG 1-0-1-0, 12 HOURS)
     Route: 065
  2. MIRTAZAPINE [Interacting]
     Active Substance: MIRTAZAPINE
     Indication: Product used for unknown indication
     Dosage: 15 MILLIGRAM, QD (MIRTAZAPIN 15 MG 0-0-0-1)
     Route: 065
  3. METOPROLOL [Suspect]
     Active Substance: METOPROLOL
     Indication: Product used for unknown indication
     Dosage: 50 MILLIGRAM, QD (METOPROLOL 50 MG 1-0-0-0, 24 HOUS)
     Route: 065
  4. SIMVASTATIN [Suspect]
     Active Substance: SIMVASTATIN
     Indication: Product used for unknown indication
     Dosage: 20 MILLIGRAM, QD (SIMVASTATIN 20 MG 0-0-1-0, 24 HOURS)
     Route: 065
  5. RIVAROXABAN [Suspect]
     Active Substance: RIVAROXABAN
     Indication: Product used for unknown indication
     Dosage: 15 MILLIGRAM, QD (RIVAROXABAN 15 MG 1-0-0-0, 24 HOURS)
     Route: 065
  6. CAPTOPRIL [Suspect]
     Active Substance: CAPTOPRIL
     Indication: Product used for unknown indication
     Dosage: 50 MILLIGRAM, QD (CAPTOPRIL 50 MG 1-0-0-0)
     Route: 065
  7. PIPAMPERONE [Interacting]
     Active Substance: PIPAMPERONE
     Indication: Product used for unknown indication
     Dosage: 20 MILLIGRAM, PRN (PIPAMPERON 20 MG ON DEMAND)
     Route: 065
  8. RISPERIDONE [Interacting]
     Active Substance: RISPERIDONE
     Indication: Product used for unknown indication
     Dosage: 0.25 MILLIGRAM, QD (RISPERIDON 0.25 MG 0-0-0-1, 24 HOURS)
     Route: 065

REACTIONS (4)
  - Delirium [Unknown]
  - Dehydration [Unknown]
  - Blood electrolytes decreased [Unknown]
  - Labelled drug-drug interaction issue [Unknown]
